FAERS Safety Report 8371451-8 (Version None)
Quarter: 2012Q2

REPORT INFORMATION
  Report Type: 
  Country: None (occurrence: None)
  Receive Date: 20120518
  Receipt Date: 20120516
  Transmission Date: 20120825
  Serious: Yes (Death, Hospitalization, Other)
  Sender: FDA-Public Use
  Company Number: GB-B.I. PHARMACEUTICALS,INC./RIDGEFIELD-2012-UK-00403UK

PATIENT
  Sex: Male
  Weight: 90.4 kg

DRUGS (11)
  1. PRADAXA [Suspect]
     Indication: TRANSIENT ISCHAEMIC ATTACK
  2. ENOXAPARIN [Suspect]
     Indication: THROMBOSIS PROPHYLAXIS
     Dosage: 40 MG
     Route: 058
     Dates: start: 20120204, end: 20120206
  3. ALLOPURINOL [Concomitant]
     Dosage: 300 MG
     Route: 048
  4. FUROSEMIDE [Concomitant]
     Dosage: 40 MG
     Route: 048
  5. QUININE SULFATE [Concomitant]
     Dosage: 300 MG
     Route: 048
  6. SIMVASTATIN [Concomitant]
     Dosage: 40 MG
     Route: 048
  7. VERAPAMIL [Concomitant]
     Dosage: 80 MG
     Route: 048
  8. DIGOXIN [Concomitant]
     Dosage: 62.5 MCG
     Route: 048
  9. RAMIPRIL [Concomitant]
     Dosage: 8 MG
     Route: 048
  10. TIOTROPIUM [Concomitant]
     Dosage: 18 MCG
     Route: 055
  11. PRADAXA [Suspect]
     Indication: ATRIAL FIBRILLATION
     Dosage: 220 MG
     Route: 048
     Dates: start: 20120117, end: 20120207

REACTIONS (11)
  - SEPSIS [None]
  - DRUG PRESCRIBING ERROR [None]
  - EROSIVE DUODENITIS [None]
  - GENERAL PHYSICAL HEALTH DETERIORATION [None]
  - PNEUMONIA [None]
  - GASTROOESOPHAGEAL REFLUX DISEASE [None]
  - MYOCARDIAL ISCHAEMIA [None]
  - RENAL IMPAIRMENT [None]
  - TENDONITIS [None]
  - CARDIAC FAILURE CONGESTIVE [None]
  - GASTROINTESTINAL HAEMORRHAGE [None]
